FAERS Safety Report 9170970 (Version 1)
Quarter: 2013Q1

REPORT INFORMATION
  Report Type: Spontaneous
  Country: BR (occurrence: BR)
  Receive Date: 20130319
  Receipt Date: 20130319
  Transmission Date: 20140127
  Serious: Yes (Other)
  Sender: FDA-Public Use
  Company Number: BR-JNJFOC-20130304663

PATIENT
  Age: 55 Year
  Sex: Male
  Weight: 86 kg

DRUGS (2)
  1. REMICADE [Suspect]
     Indication: PSORIATIC ARTHROPATHY
     Route: 042
     Dates: start: 201301
  2. REMICADE [Suspect]
     Indication: PSORIATIC ARTHROPATHY
     Route: 042
     Dates: start: 20130218

REACTIONS (3)
  - Dengue fever [Not Recovered/Not Resolved]
  - Weight decreased [Not Recovered/Not Resolved]
  - Psoriasis [Not Recovered/Not Resolved]
